FAERS Safety Report 13043922 (Version 1)
Quarter: 2016Q4

REPORT INFORMATION
  Report Type: Spontaneous
  Country: US (occurrence: US)
  Receive Date: 20161220
  Receipt Date: 20161220
  Transmission Date: 20170207
  Serious: No
  Sender: FDA-Public Use
  Company Number: US-ROCHE-1007549

PATIENT
  Age: 81 Year
  Sex: Male
  Weight: 83.99 kg

DRUGS (5)
  1. ZELBORAF [Suspect]
     Active Substance: VEMURAFENIB
     Route: 065
     Dates: start: 20111020
  2. ALPRAZOLAM. [Concomitant]
     Active Substance: ALPRAZOLAM
     Dosage: PRN
     Route: 065
  3. ZELBORAF [Suspect]
     Active Substance: VEMURAFENIB
     Indication: MALIGNANT MELANOMA
     Dosage: UNKNOWN
     Route: 065
     Dates: start: 20110825
  4. AMLODIPINE [Concomitant]
     Active Substance: AMLODIPINE BESYLATE
     Route: 048
  5. TRAVATAN [Concomitant]
     Active Substance: TRAVOPROST
     Dosage: DOSE: 0.004 %
     Route: 065

REACTIONS (7)
  - Sunburn [Recovering/Resolving]
  - Arthralgia [Unknown]
  - Gastrointestinal motility disorder [Unknown]
  - Melanocytic naevus [Unknown]
  - Fatigue [Unknown]
  - Blister [Recovering/Resolving]
  - Skin exfoliation [Recovering/Resolving]

NARRATIVE: CASE EVENT DATE: 20111013
